FAERS Safety Report 6792436-9 (Version None)
Quarter: 2010Q2

REPORT INFORMATION
  Report Type: 
  Country: None (occurrence: None)
  Receive Date: 20100624
  Receipt Date: 20100622
  Transmission Date: 20101027
  Serious: Yes (Other)
  Sender: FDA-Public Use
  Company Number: DE-MERCK-1006DEU00093

PATIENT
  Age: 76 Year
  Sex: Female

DRUGS (4)
  1. ZOCOR [Suspect]
     Route: 048
  2. HYDROCHLOROTHIAZIDE [Suspect]
     Route: 065
  3. PANTOPRAZOLE [Suspect]
     Route: 065
  4. LEVOTHYROXINE SODIUM [Suspect]
     Route: 048

REACTIONS (1)
  - WOUND TREATMENT [None]
